FAERS Safety Report 13344728 (Version 1)
Quarter: 2017Q1

REPORT INFORMATION
  Report Type: Report from Study
  Country: None (occurrence: US)
  Receive Date: 20170317
  Receipt Date: 20170317
  Transmission Date: 20170428
  Serious: Yes (Hospitalization, Other)
  Sender: FDA-Public Use
  Company Number: US-ABBVIE-17K-163-1905189-00

PATIENT
  Sex: Female

DRUGS (1)
  1. HUMIRA [Suspect]
     Active Substance: ADALIMUMAB
     Indication: ANKYLOSING SPONDYLITIS
     Route: 058
     Dates: start: 2011

REACTIONS (7)
  - Diarrhoea [Unknown]
  - Hypertension [Unknown]
  - Alcoholism [Unknown]
  - Sinusitis [Unknown]
  - Weight decreased [Unknown]
  - Ear infection [Unknown]
  - Visual impairment [Unknown]
